FAERS Safety Report 20382100 (Version 1)
Quarter: 2022Q1

REPORT INFORMATION
  Report Type: Spontaneous
  Country: FR (occurrence: FR)
  Receive Date: 20220127
  Receipt Date: 20220127
  Transmission Date: 20220424
  Serious: Yes (Other)
  Sender: FDA-Public Use
  Company Number: FR-NOVARTISPH-NVSC2022FR016401

PATIENT
  Sex: Male

DRUGS (1)
  1. METHYLPHENIDATE HYDROCHLORIDE [Suspect]
     Active Substance: METHYLPHENIDATE HYDROCHLORIDE
     Indication: Product used for unknown indication
     Dosage: 10 MG(FOR A FEW MONTHS SINCE 2015)
     Route: 065
     Dates: start: 2015

REACTIONS (4)
  - Suicidal ideation [Unknown]
  - Chest pain [Unknown]
  - Anxiety [Unknown]
  - Aggression [Unknown]
